FAERS Safety Report 5757524-4 (Version None)
Quarter: 2008Q2

REPORT INFORMATION
  Report Type: 
  Country: None (occurrence: None)
  Receive Date: 20080603
  Receipt Date: 20080522
  Transmission Date: 20081010
  Serious: Yes (Other)
  Sender: FDA-Public Use
  Company Number: DK-ELI_LILLY_AND_COMPANY-DK200801006177

PATIENT
  Sex: Male
  Weight: 40 kg

DRUGS (6)
  1. STRATTERA [Suspect]
     Indication: ATTENTION DEFICIT/HYPERACTIVITY DISORDER
     Dosage: 18 MG, DAILY (1/D)
     Route: 048
     Dates: start: 20071127, end: 20071202
  2. STRATTERA [Interacting]
     Dosage: 25 MG, UNKNOWN
     Route: 065
     Dates: start: 20071203, end: 20071210
  3. STRATTERA [Interacting]
     Dosage: 40 MG, UNKNOWN
     Route: 065
     Dates: start: 20071210, end: 20071220
  4. STRATTERA [Interacting]
     Dosage: 36 MG, DAILY (1/D)
     Route: 048
     Dates: start: 20070101, end: 20071220
  5. ABILIFY [Interacting]
     Indication: ATTENTION DEFICIT/HYPERACTIVITY DISORDER
     Dosage: 2 MG, UNKNOWN
     Route: 065
     Dates: start: 20070913
  6. ABILIFY [Interacting]
     Dosage: 5 MG, UNKNOWN
     Route: 065
     Dates: start: 20071023

REACTIONS (2)
  - DRUG INTERACTION [None]
  - TOURETTE'S DISORDER [None]
